FAERS Safety Report 5062411-3 (Version None)
Quarter: 2006Q3

REPORT INFORMATION
  Report Type: 
  Country: None (occurrence: None)
  Receive Date: 20060721
  Receipt Date: 20060711
  Transmission Date: 20061208
  Serious: Yes (Other)
  Sender: FDA-Public Use
  Company Number: 2006087074

PATIENT
  Sex: Female
  Weight: 125 kg

DRUGS (1)
  1. ZELDOX (CAPSULES) (ZIPRASIDONE) [Suspect]
     Indication: PSYCHOTIC DISORDER
     Dosage: 20 MG, ORAL
     Route: 048
     Dates: start: 20060517

REACTIONS (6)
  - CHAPPED LIPS [None]
  - DYSPHONIA [None]
  - PHARYNGOLARYNGEAL PAIN [None]
  - RASH VESICULAR [None]
  - SWOLLEN TONGUE [None]
  - TONGUE DISORDER [None]
